FAERS Safety Report 19165555 (Version 2)
Quarter: 2021Q2

REPORT INFORMATION
  Report Type: Spontaneous
  Country: US (occurrence: US)
  Receive Date: 20210421
  Receipt Date: 20210423
  Transmission Date: 20210717
  Serious: Yes (Other)
  Sender: FDA-Public Use
  Company Number: US-ELI_LILLY_AND_COMPANY-US202104007791

PATIENT
  Age: 84 Year
  Sex: Male

DRUGS (1)
  1. BASAGLAR [Suspect]
     Active Substance: INSULIN GLARGINE
     Indication: TYPE 2 DIABETES MELLITUS
     Dosage: 14 U, UNKNOWN
     Route: 065
     Dates: start: 201910

REACTIONS (4)
  - Blood pressure abnormal [Unknown]
  - Hypoacusis [Unknown]
  - Arthropathy [Unknown]
  - Scratch [Unknown]

NARRATIVE: CASE EVENT DATE: 20210405
